FAERS Safety Report 11138941 (Version 1)
Quarter: 2015Q2

REPORT INFORMATION
  Report Type: Spontaneous
  Country: JP (occurrence: None)
  Receive Date: 20150522
  Receipt Date: 20150522
  Transmission Date: 20150821
  Serious: Yes (Death, Life-Threatening)
  Sender: FDA-Public Use
  Company Number: 2015FE01593

PATIENT
  Age: 67 Year
  Sex: Male

DRUGS (1)
  1. GONAX (DEGARELIX) POWDER AND SOLVENT FOR SOLUTION FOR INJECTION [Suspect]
     Active Substance: DEGARELIX
     Indication: PROSTATE CANCER
     Route: 058

REACTIONS (1)
  - Platelet count decreased [None]
